FAERS Safety Report 6530015-9 (Version None)
Quarter: 2009Q4

REPORT INFORMATION
  Report Type: 
  Country: None (occurrence: None)
  Receive Date: 20091231
  Receipt Date: 20091217
  Transmission Date: 20100525
  Serious: Yes (Hospitalization, Other)
  Sender: FDA-Public Use
  Company Number: 2009AL007929

PATIENT
  Age: 69 Year
  Sex: Male

DRUGS (3)
  1. CARBAMAZEPINE [Suspect]
     Dosage: 400 MG; BID
     Dates: start: 20050101
  2. PHENOBARBITAL TAB [Suspect]
     Indication: EPILEPSY
     Dosage: 180 MG;QD
     Dates: start: 20050101
  3. LYRICA [Concomitant]

REACTIONS (5)
  - BALANCE DISORDER [None]
  - DIPLOPIA [None]
  - DRUG INTERACTION [None]
  - FALL [None]
  - VISION BLURRED [None]
